FAERS Safety Report 9335868 (Version 1)
Quarter: 2013Q2

REPORT INFORMATION
  Report Type: Spontaneous
  Country: US (occurrence: US)
  Receive Date: 20130606
  Receipt Date: 20130606
  Transmission Date: 20140414
  Serious: No
  Sender: FDA-Public Use
  Company Number: US-AMGEN-USASP2013015814

PATIENT
  Sex: Female

DRUGS (6)
  1. PROLIA [Suspect]
     Indication: OSTEOPOROSIS POSTMENOPAUSAL
     Dosage: UNK
     Dates: start: 201003
  2. PRAVASTATIN [Concomitant]
     Dosage: UNK
     Dates: start: 201003
  3. CALCIUM [Concomitant]
  4. VITAMIN D                          /00107901/ [Concomitant]
  5. ASPIRIN [Concomitant]
  6. ADVIL                              /00044201/ [Concomitant]
     Dosage: UNK

REACTIONS (6)
  - Muscle spasms [Unknown]
  - Memory impairment [Unknown]
  - Mobility decreased [Unknown]
  - Neoplasm [Unknown]
  - Pain [Unknown]
  - Intervertebral disc protrusion [Unknown]
